FAERS Safety Report 21027277 (Version 1)
Quarter: 2022Q2

REPORT INFORMATION
  Report Type: Spontaneous
  Country: GB (occurrence: GB)
  Receive Date: 20220630
  Receipt Date: 20220630
  Transmission Date: 20220720
  Serious: Yes (Other)
  Sender: FDA-Public Use
  Company Number: None

PATIENT
  Age: 72 Year
  Sex: Female
  Weight: 60 kg

DRUGS (2)
  1. PRAMIPEXOLE [Suspect]
     Active Substance: PRAMIPEXOLE
     Indication: Restless legs syndrome
     Dosage: 0.088MG X 5 (2 MIDDAY, 3 EVENING); ;
     Route: 065
     Dates: start: 20100301, end: 20180501
  2. LEVOTHYROXINE [Concomitant]
     Active Substance: LEVOTHYROXINE
     Indication: Product used for unknown indication
     Dosage: UNKNOWN

REACTIONS (3)
  - Medication error [Unknown]
  - Restless legs syndrome [Recovered/Resolved with Sequelae]
  - Condition aggravated [Unknown]
